FAERS Safety Report 9483230 (Version 1)
Quarter: 2013Q3

REPORT INFORMATION
  Report Type: Spontaneous
  Country: CA (occurrence: CA)
  Receive Date: 20130828
  Receipt Date: 20130828
  Transmission Date: 20140515
  Serious: Yes (Hospitalization)
  Sender: FDA-Public Use
  Company Number: CA-AMGEN-KDL244360

PATIENT
  Age: 62 Year
  Sex: Female

DRUGS (7)
  1. ENBREL [Suspect]
     Indication: RHEUMATOID ARTHRITIS
     Dosage: 25 MG, 2 TIMES/WK
     Route: 058
     Dates: start: 20020613, end: 20070526
  2. IBUPROFEN [Concomitant]
  3. ACETAMINOPHEN [Concomitant]
  4. PREDNISONE [Concomitant]
  5. AMLODIPINE BESILATE [Concomitant]
  6. LEVOTHRYROXINE SODIUM [Concomitant]
  7. FOLIC ACID [Concomitant]

REACTIONS (3)
  - Localised infection [Recovering/Resolving]
  - Joint swelling [Unknown]
  - Gait disturbance [Unknown]
